FAERS Safety Report 7274363-6 (Version None)
Quarter: 2011Q1

REPORT INFORMATION
  Report Type: 
  Country: None (occurrence: None)
  Receive Date: 20110201
  Receipt Date: 20110201
  Transmission Date: 20110831
  Serious: Yes (Hospitalization)
  Sender: FDA-Public Use
  Company Number: None

PATIENT
  Age: 53 Year
  Sex: Male
  Weight: 79 kg

DRUGS (1)
  1. METFORMIN HCL [Suspect]
     Indication: HYPERGLYCAEMIA
     Dosage: 500 MG BID PO
     Route: 048
     Dates: start: 20110122, end: 20110127

REACTIONS (1)
  - RASH [None]
